FAERS Safety Report 24150008 (Version 2)
Quarter: 2024Q3

REPORT INFORMATION
  Report Type: Spontaneous
  Country: US (occurrence: US)
  Receive Date: 20240730
  Receipt Date: 20240730
  Transmission Date: 20241016
  Serious: Yes (Other)
  Sender: ROCHE
  Company Number: US-ROCHE-10000033286

PATIENT
  Age: 44 Year
  Sex: Female

DRUGS (1)
  1. XOLAIR [Suspect]
     Active Substance: OMALIZUMAB
     Indication: Chronic spontaneous urticaria
     Route: 065

REACTIONS (7)
  - Angioedema [Unknown]
  - Anxiety [Unknown]
  - Depression [Unknown]
  - Sleep disorder [Unknown]
  - Asthma [Unknown]
  - Hypertension [Unknown]
  - Obesity [Unknown]
